FAERS Safety Report 7440268-0 (Version None)
Quarter: 2011Q2

REPORT INFORMATION
  Report Type: 
  Country: None (occurrence: None)
  Receive Date: 20110427
  Receipt Date: 20110413
  Transmission Date: 20111010
  Serious: Yes (Other)
  Sender: FDA-Public Use
  Company Number: US-AMGEN-USASP2011019690

PATIENT

DRUGS (1)
  1. ENBREL [Suspect]
     Indication: SKIN DISORDER
     Dosage: UNK

REACTIONS (1)
  - IDIOPATHIC THROMBOCYTOPENIC PURPURA [None]
